FAERS Safety Report 4719265-1 (Version None)
Quarter: 2005Q3

REPORT INFORMATION
  Report Type: 
  Country: None (occurrence: None)
  Receive Date: 20050721
  Receipt Date: 20050601
  Transmission Date: 20060218
  Serious: No
  Sender: FDA-Public Use
  Company Number: US-GLAXOSMITHKLINE-A0560778A

PATIENT
  Sex: Male

DRUGS (5)
  1. LEXIVA [Suspect]
     Indication: HIV INFECTION
     Dosage: 700MG TWICE PER DAY
     Route: 048
  2. ANTACID TAB [Concomitant]
  3. NORVIR [Concomitant]
  4. EPIVIR [Concomitant]
  5. TENOFOVIR [Concomitant]

REACTIONS (2)
  - PHARMACEUTICAL PRODUCT COMPLAINT [None]
  - STOOL ANALYSIS ABNORMAL [None]
